FAERS Safety Report 19174090 (Version 1)
Quarter: 2021Q2

REPORT INFORMATION
  Report Type: Spontaneous
  Country: US (occurrence: US)
  Receive Date: 20210423
  Receipt Date: 20210423
  Transmission Date: 20210717
  Serious: No
  Sender: FDA-Public Use
  Company Number: US-PFIZER INC-2020270304

PATIENT
  Age: 40 Year
  Sex: Female
  Weight: 115.65 kg

DRUGS (2)
  1. GENOTROPIN [Suspect]
     Active Substance: SOMATROPIN
     Indication: OVERWEIGHT
     Dosage: 0.5 MG, DAILY
     Dates: start: 2020
  2. GENOTROPIN [Suspect]
     Active Substance: SOMATROPIN
     Indication: HEADACHE

REACTIONS (5)
  - Wrong technique in device usage process [Unknown]
  - Off label use [Unknown]
  - Device use error [Unknown]
  - Drug effective for unapproved indication [Unknown]
  - Drug dose omission by device [Unknown]

NARRATIVE: CASE EVENT DATE: 2020
